FAERS Safety Report 9191082 (Version 3)
Quarter: 2013Q3

REPORT INFORMATION
  Report Type: Spontaneous
  Country: US (occurrence: US)
  Receive Date: 20130326
  Receipt Date: 20130731
  Transmission Date: 20140515
  Serious: No
  Sender: FDA-Public Use
  Company Number: US-PFIZER INC-2013096264

PATIENT
  Age: 58 Year
  Sex: Male
  Weight: 88.44 kg

DRUGS (3)
  1. LYRICA [Suspect]
     Indication: NEURALGIA
     Dosage: 75 MG, AS NEEDED (ELABORATED AS THREE TO 4 TIMES A DAY)
     Dates: end: 201303
  2. DIAZEPAM [Concomitant]
     Indication: SLEEP DISORDER
     Dosage: 5MG AS NEEDED (USUALLY DAILY)
  3. LORTAB [Concomitant]
     Indication: BACK PAIN
     Dosage: 7.5 MG, AS NEEDED (THREE TO FOUR TIMES A DAY)

REACTIONS (4)
  - Diarrhoea [Not Recovered/Not Resolved]
  - Vomiting [Not Recovered/Not Resolved]
  - Malaise [Not Recovered/Not Resolved]
  - Feeling abnormal [Unknown]
